FAERS Safety Report 5644260-8 (Version None)
Quarter: 2008Q1

REPORT INFORMATION
  Report Type: 
  Country: None (occurrence: None)
  Receive Date: 20080227
  Receipt Date: 20080215
  Transmission Date: 20080703
  Serious: Yes (Hospitalization)
  Sender: FDA-Public Use
  Company Number: TPA2008A00218

PATIENT
  Age: 68 Year
  Sex: Male
  Weight: 95.709 kg

DRUGS (4)
  1. ACTOS [Suspect]
     Indication: DIABETES MELLITUS
     Dosage: 1 IN 1 D, PER ORAL : 45 MG, 1 IN 1 D, PER ORAL
     Route: 048
     Dates: start: 20050101
  2. UNKNOWN BLOOD PRESSURE MEDICATION (ANTIHYPERTENSIVES) [Concomitant]
  3. UNKNOWN OTHER MEDICATIONS (ALL OTHER THERAPEUTIC PRODUCTS) [Concomitant]
  4. UNKNOWN PAIN MEDICATION (OTHER ANALGESICS AND ANTIPYRETICS) [Concomitant]

REACTIONS (5)
  - BLOOD PRESSURE INCREASED [None]
  - CARDIAC DISORDER [None]
  - OEDEMA PERIPHERAL [None]
  - SPINAL COLUMN STENOSIS [None]
  - WEIGHT INCREASED [None]
